FAERS Safety Report 20728106 (Version 1)
Quarter: 2022Q2

REPORT INFORMATION
  Report Type: Report from Study
  Country: US (occurrence: US)
  Receive Date: 20220420
  Receipt Date: 20220420
  Transmission Date: 20220720
  Serious: Yes (Other)
  Sender: FDA-Public Use
  Company Number: US-ABBVIE-22K-163-4359793-00

PATIENT
  Sex: Male

DRUGS (1)
  1. SKYRIZI [Suspect]
     Active Substance: RISANKIZUMAB-RZAA
     Indication: Psoriasis
     Dosage: WEEK 0
     Route: 058
     Dates: start: 202203

REACTIONS (5)
  - Pemphigoid [Not Recovered/Not Resolved]
  - Tongue discomfort [Unknown]
  - Tongue discolouration [Unknown]
  - Fungal infection [Unknown]
  - Tinea cruris [Unknown]

NARRATIVE: CASE EVENT DATE: 20220101
